FAERS Safety Report 8814029 (Version 1)
Quarter: 2012Q4

REPORT INFORMATION
  Report Type: 
  Country: US (occurrence: US)
  Receive Date: 20120928
  Receipt Date: 20120928
  Transmission Date: 20130627
  Serious: No
  Sender: FDA-Public Use
  Company Number: US-PFIZER INC-2012239431

PATIENT
  Age: 27 Year
  Sex: Female

DRUGS (1)
  1. ADVIL MIGRAINE [Suspect]
     Indication: MIGRAINE
     Dosage: 2 capsules, every 4 hrs as needed
     Route: 048
     Dates: start: 20120923

REACTIONS (1)
  - Drug ineffective [Unknown]
